FAERS Safety Report 5504756-6 (Version None)
Quarter: 2007Q4

REPORT INFORMATION
  Report Type: 
  Country: None (occurrence: None)
  Receive Date: 20071102
  Receipt Date: 20071025
  Transmission Date: 20080405
  Serious: Yes (Disabling)
  Sender: FDA-Public Use
  Company Number: JP-ASTRAZENECA-2007AP05306

PATIENT
  Age: 73 Year
  Sex: Female
  Weight: 59 kg

DRUGS (9)
  1. IRESSA [Suspect]
     Indication: LUNG NEOPLASM MALIGNANT
     Route: 048
     Dates: start: 20051005, end: 20070116
  2. IRESSA [Suspect]
     Route: 048
     Dates: start: 20070721, end: 20070816
  3. ASTOMIN [Concomitant]
     Indication: LUNG NEOPLASM MALIGNANT
     Route: 048
     Dates: start: 20051206
  4. ARIMIDEX [Concomitant]
     Indication: BREAST CANCER
     Route: 048
     Dates: start: 20050101
  5. ARIMIDEX [Concomitant]
     Route: 048
     Dates: start: 20060124
  6. MAGLAX [Concomitant]
     Indication: CONSTIPATION
     Route: 048
     Dates: start: 20060926
  7. WARFARIN SODIUM [Concomitant]
     Indication: PULMONARY ARTERY THROMBOSIS
     Route: 048
     Dates: start: 20070316
  8. MUCOSOLVAN [Concomitant]
     Indication: LUNG NEOPLASM MALIGNANT
     Route: 048
     Dates: start: 20070320
  9. UNKNOWNDRUG [Concomitant]
     Route: 048
     Dates: start: 20070701

REACTIONS (1)
  - MUSCULAR WEAKNESS [None]
